FAERS Safety Report 8848886 (Version 2)
Quarter: 2013Q2

REPORT INFORMATION
  Report Type: Report from Study
  Country: MX (occurrence: MX)
  Receive Date: 20121018
  Receipt Date: 20130521
  Transmission Date: 20140414
  Serious: Yes (Death, Hospitalization)
  Sender: FDA-Public Use
  Company Number: PHHY2012MX092723

PATIENT
  Age: 42 Year
  Sex: Male

DRUGS (2)
  1. FORADIL [Suspect]
     Indication: ASTHMA
     Dosage: UNK UKN, UNK
  2. MIFLONIDE [Suspect]
     Dosage: UNK UKN, UNK

REACTIONS (2)
  - Death [Fatal]
  - Neoplasm malignant [Unknown]
